FAERS Safety Report 6371759-1 (Version None)
Quarter: 2009Q3

REPORT INFORMATION
  Report Type: 
  Country: None (occurrence: None)
  Receive Date: 20090923
  Receipt Date: 20090915
  Transmission Date: 20100115
  Serious: Yes (Other)
  Sender: FDA-Public Use
  Company Number: US-NOVOPROD-291701

PATIENT
  Age: 60 Year
  Sex: Female

DRUGS (1)
  1. ACTIVELLA [Suspect]
     Indication: MENOPAUSE
     Dosage: 1 TAB, QD
     Route: 048
     Dates: start: 20020101

REACTIONS (1)
  - TOOTH INFECTION [None]
